FAERS Safety Report 4539467-7 (Version None)
Quarter: 2004Q4

REPORT INFORMATION
  Report Type: 
  Country: None (occurrence: None)
  Receive Date: 20041222
  Receipt Date: 20041215
  Transmission Date: 20050328
  Serious: Yes (Hospitalization)
  Sender: FDA-Public Use
  Company Number: FABR-10918

PATIENT
  Age: 53 Year
  Sex: Female
  Weight: 108.4 kg

DRUGS (13)
  1. FABRAZYME [Suspect]
     Indication: FABRY'S DISEASE
     Dosage: 0.6 MG/KG Q2WKS IV
     Route: 042
     Dates: start: 20041125
  2. CARTIA XT [Concomitant]
  3. NEURONTIN [Concomitant]
  4. DONNATAB [Concomitant]
  5. LIPITOR [Concomitant]
  6. PRAZOSIN HCL [Concomitant]
  7. OROXINE [Concomitant]
  8. ESOMEPRAZOLE [Concomitant]
  9. SEREPAX [Concomitant]
  10. KALMA [Concomitant]
  11. CARVEDILOL [Concomitant]
  12. CARDIZEM [Concomitant]
  13. NITROGLYCERINE SPRAY [Concomitant]

REACTIONS (1)
  - CHEST PAIN [None]
